FAERS Safety Report 7373660-3 (Version None)
Quarter: 2011Q1

REPORT INFORMATION
  Report Type: 
  Country: None (occurrence: None)
  Receive Date: 20110325
  Receipt Date: 20110317
  Transmission Date: 20110831
  Serious: Yes (Congenital Anomaly, Other)
  Sender: FDA-Public Use
  Company Number: TR-ELI_LILLY_AND_COMPANY-TR201102000750

PATIENT

DRUGS (3)
  1. HUMULIN R [Suspect]
     Indication: GESTATIONAL DIABETES
     Dosage: 1 U, 3/D
     Route: 064
     Dates: start: 20100901, end: 20100901
  2. HUMULIN N [Suspect]
     Indication: GESTATIONAL DIABETES
     Dosage: 1 U, DAILY (1/D)
     Route: 064
     Dates: start: 20100901, end: 20100901
  3. FOLIC ACID W/IRON [Concomitant]
     Route: 064
     Dates: end: 20101022

REACTIONS (2)
  - TALIPES [None]
  - DRUG EXPOSURE DURING PREGNANCY [None]
